FAERS Safety Report 4360771-X (Version None)
Quarter: 2004Q2

REPORT INFORMATION
  Report Type: 
  Country: None (occurrence: None)
  Receive Date: 20040519
  Receipt Date: 20040513
  Transmission Date: 20050107
  Serious: Yes (Death)
  Sender: FDA-Public Use
  Company Number: 04-05-0664

PATIENT
  Age: 30 Year
  Sex: Male

DRUGS (1)
  1. CLOZAPINE [Suspect]
     Indication: DELUSION
     Dosage: 100-450MG QD ORAL
     Route: 048
     Dates: start: 20001101, end: 20040401

REACTIONS (1)
  - RESPIRATORY ARREST [None]
